FAERS Safety Report 11235752 (Version 2)
Quarter: 2015Q3

REPORT INFORMATION
  Report Type: Spontaneous
  Country: US (occurrence: US)
  Receive Date: 20150702
  Receipt Date: 20150728
  Transmission Date: 20151125
  Serious: No
  Sender: FDA-Public Use
  Company Number: ALCN2015US003991

PATIENT
  Sex: Female

DRUGS (2)
  1. SYSTANE PF [Suspect]
     Active Substance: POLYETHYLENE GLYCOL 400\PROPYLENE GLYCOL
     Indication: DRY EYE
     Dosage: 1 GTT, PRN
     Route: 047
  2. GENTEAL GEL [Suspect]
     Active Substance: CARBOXYMETHYLCELLULOSE SODIUM\HYPROMELLOSES
     Indication: DRY EYE
     Dosage: 1 GTT, QHS
     Route: 047

REACTIONS (4)
  - Foreign body sensation in eyes [Recovering/Resolving]
  - Periorbital oedema [Recovering/Resolving]
  - Erythema [Recovering/Resolving]
  - Eye swelling [Recovering/Resolving]
